FAERS Safety Report 10527063 (Version 1)
Quarter: 2014Q4

REPORT INFORMATION
  Report Type: Spontaneous
  Country: US (occurrence: None)
  Receive Date: 20141016
  Receipt Date: 20141016
  Transmission Date: 20150528
  Serious: Yes (Hospitalization, Other)
  Sender: FDA-Public Use
  Company Number: 2014SCAL000171

PATIENT
  Age: 47 Year
  Sex: Male

DRUGS (6)
  1. PROPOFOL (PROPOFOL) [Concomitant]
     Active Substance: PROPOFOL
  2. FENTANYL (FENTANYL) [Concomitant]
     Active Substance: FENTANYL
  3. MORPHINE (MORPHINE) [Concomitant]
  4. VECURONIUM  (VECURONIUM) [Concomitant]
  5. FAMOTIDINE. [Suspect]
     Active Substance: FAMOTIDINE
     Indication: PRODUCT USED FOR UNKNOWN INDICATION
  6. CEFOXITIN [Concomitant]
     Active Substance: CEFOXITIN\CEFOXITIN SODIUM

REACTIONS (7)
  - Hepatitis [None]
  - Acute kidney injury [None]
  - White blood cell count increased [None]
  - Blood albumin decreased [None]
  - Abdominal pain [None]
  - Chromaturia [None]
  - Cholecystitis [None]
